FAERS Safety Report 21588425 (Version 2)
Quarter: 2022Q4

REPORT INFORMATION
  Report Type: Spontaneous
  Country: GB (occurrence: GB)
  Receive Date: 20221114
  Receipt Date: 20221201
  Transmission Date: 20230112
  Serious: Yes (Other)
  Sender: FDA-Public Use
  Company Number: GB-MHRA-MED-202210300712430270-YPMBD

PATIENT
  Age: 61 Year
  Sex: Female
  Weight: 67 kg

DRUGS (1)
  1. DULOXETINE [Suspect]
     Active Substance: DULOXETINE
     Indication: Neuropathy peripheral
     Dosage: 30 MILLIGRAM, ONCE A DAY
     Route: 065
     Dates: start: 20221028, end: 20221029

REACTIONS (7)
  - Balance disorder [Recovering/Resolving]
  - Somnolence [Recovering/Resolving]
  - Chest discomfort [Recovering/Resolving]
  - Vision blurred [Recovering/Resolving]
  - Nausea [Recovered/Resolved]
  - Dry mouth [Unknown]
  - Sensory disturbance [Unknown]

NARRATIVE: CASE EVENT DATE: 20211029
